FAERS Safety Report 9908036 (Version 2)
Quarter: 2014Q1

REPORT INFORMATION
  Report Type: Spontaneous
  Country: US (occurrence: US)
  Receive Date: 20140219
  Receipt Date: 20140219
  Transmission Date: 20141002
  Serious: Yes (Death)
  Sender: FDA-Public Use
  Company Number: US-ROCHE-1313718

PATIENT
  Age: 74 Year
  Sex: Male

DRUGS (5)
  1. XELODA [Suspect]
     Indication: COLON CANCER
     Dosage: 3 TABS BID, 14 DAYS ON FOLLOWED BY 7 DAYS OFF
     Route: 048
     Dates: start: 20130811
  2. XELODA [Suspect]
     Route: 048
     Dates: start: 20131112
  3. XELODA [Suspect]
     Dosage: LAST DOSE PRIOR TO SAE: 30/JAN/2014
     Route: 048
     Dates: start: 20131114
  4. TRAMADOL [Concomitant]
  5. HYDROMORPHONE [Concomitant]

REACTIONS (9)
  - Death [Fatal]
  - Decreased appetite [Unknown]
  - Fatigue [Unknown]
  - Eructation [Unknown]
  - Flatulence [Unknown]
  - Abdominal distension [Unknown]
  - Diarrhoea [Unknown]
  - Abdominal pain upper [Unknown]
  - Muscle spasms [Unknown]
